FAERS Safety Report 9753225 (Version 1)
Quarter: 2013Q4

REPORT INFORMATION
  Report Type: Spontaneous
  Country: US (occurrence: US)
  Receive Date: 20131213
  Receipt Date: 20131213
  Transmission Date: 20140711
  Serious: No
  Sender: FDA-Public Use
  Company Number: US-GILEAD-2010-0027622

PATIENT
  Sex: Female
  Weight: 57.61 kg

DRUGS (28)
  1. LETAIRIS [Suspect]
     Indication: PULMONARY ARTERIAL HYPERTENSION
     Route: 048
     Dates: start: 20091109
  2. COMBIVENT [Concomitant]
  3. AMOXIL [Concomitant]
  4. XANAX [Concomitant]
  5. COZAAR [Concomitant]
  6. LANTUS [Concomitant]
  7. CELEXA [Concomitant]
  8. IMDUR [Concomitant]
  9. ZYRTEC [Concomitant]
  10. ALBUTEROL [Concomitant]
  11. LANOXIN [Concomitant]
  12. SODIUM CHLORIDE [Concomitant]
  13. KEPPRA [Concomitant]
  14. REVATIO [Concomitant]
  15. RESTORIL [Concomitant]
  16. LEXAPRO [Concomitant]
  17. ALDACTONE [Concomitant]
  18. LASIX [Concomitant]
  19. POTASSIUM CHLORIDE [Concomitant]
  20. MILK OF MAGNESIA [Concomitant]
  21. MAGNESIUM [Concomitant]
  22. DULCOLAX [Concomitant]
  23. WELLBUTRIN [Concomitant]
  24. NASACORT [Concomitant]
  25. GLUCOPHAGE [Concomitant]
  26. NEURONTIN [Concomitant]
  27. PRILOSEC [Concomitant]
  28. HYDROCHLOROTHIAZIDE [Concomitant]

REACTIONS (1)
  - Sinus congestion [Unknown]
